FAERS Safety Report 7069924-3 (Version None)
Quarter: 2010Q4

REPORT INFORMATION
  Report Type: 
  Country: None (occurrence: None)
  Receive Date: 20101028
  Receipt Date: 20100804
  Transmission Date: 20110411
  Serious: No
  Sender: FDA-Public Use
  Company Number: US-WYE-H16459710

PATIENT
  Age: 52 Year
  Sex: Female
  Weight: 68.1 kg

DRUGS (3)
  1. ADVIL MIGRAINE LIQUI-GELS [Suspect]
     Indication: MIGRAINE
     Dosage: 2 LIQUI-GELS ONCE
     Route: 048
  2. LOVAZA [Concomitant]
  3. VITAMINS [Concomitant]

REACTIONS (1)
  - DRUG INEFFECTIVE [None]
